FAERS Safety Report 18194453 (Version 1)
Quarter: 2020Q3

REPORT INFORMATION
  Report Type: Report from Study
  Country: CZ (occurrence: CZ)
  Receive Date: 20200825
  Receipt Date: 20200825
  Transmission Date: 20201103
  Serious: Yes (Other)
  Sender: FDA-Public Use
  Company Number: CZ-JNJFOC-20200819864

PATIENT

DRUGS (4)
  1. 5?AMINOSALICYLIC ACID [Suspect]
     Active Substance: MESALAMINE
     Indication: CROHN^S DISEASE
     Route: 065
  2. PREDNISONE. [Suspect]
     Active Substance: PREDNISONE
     Indication: CROHN^S DISEASE
     Route: 048
  3. REMICADE [Suspect]
     Active Substance: INFLIXIMAB
     Indication: CROHN^S DISEASE
     Dosage: WEEK 0, 2, 6, FOLLOWED BY MAINTENANCE THERAPY EVERY 8 WEEKS
     Route: 042
  4. AZATHIOPRINE. [Suspect]
     Active Substance: AZATHIOPRINE
     Indication: CROHN^S DISEASE
     Dosage: ONCE A DAY OR DIVIDED INTO TWO DOSES
     Route: 065

REACTIONS (9)
  - Epstein-Barr viraemia [Unknown]
  - Nausea [Unknown]
  - Dermatitis [Unknown]
  - Henoch-Schonlein purpura nephritis [Unknown]
  - Cataract [Unknown]
  - Infusion related reaction [Unknown]
  - Erythema [Unknown]
  - Arthralgia [Unknown]
  - Herpes zoster [Unknown]
